FAERS Safety Report 24314096 (Version 1)
Quarter: 2024Q3

REPORT INFORMATION
  Report Type: Other
  Country: US (occurrence: US)
  Receive Date: 20240912
  Receipt Date: 20240912
  Transmission Date: 20241017
  Serious: No
  Sender: SIGMA TAU
  Company Number: US-LEADIANT BIOSCIENCES, INC.-2024STPI000044

PATIENT
  Sex: Male

DRUGS (1)
  1. MATULANE [Suspect]
     Active Substance: PROCARBAZINE HYDROCHLORIDE
     Indication: Anaplastic large cell lymphoma T- and null-cell types
     Dosage: 50 MILLIGRAMS, 3 CAPSULES (150 MG TOTAL) AT BEDTIME ON DAYS 2-8 OF EACH ODD 14 DAY CHEMOTHERAPY CYCL
     Route: 048
     Dates: start: 20230210

REACTIONS (1)
  - Asthenia [Unknown]
